FAERS Safety Report 19332884 (Version 2)
Quarter: 2021Q4

REPORT INFORMATION
  Report Type: Report from Study
  Country: CO (occurrence: CO)
  Receive Date: 20210529
  Receipt Date: 20211206
  Transmission Date: 20220303
  Serious: Yes (Other)
  Sender: FDA-Public Use
  Company Number: CO-NOVARTISPH-NVSC2020CO091645

PATIENT
  Sex: Female

DRUGS (1)
  1. ELTROMBOPAG OLAMINE [Suspect]
     Active Substance: ELTROMBOPAG OLAMINE
     Indication: Immune thrombocytopenia
     Dosage: UNK
     Route: 048

REACTIONS (6)
  - Haemorrhage [Unknown]
  - Heavy menstrual bleeding [Unknown]
  - Contusion [Unknown]
  - Decreased immune responsiveness [Unknown]
  - Anxiety [Unknown]
  - Product availability issue [Unknown]
